FAERS Safety Report 5995928-5 (Version None)
Quarter: 2008Q4

REPORT INFORMATION
  Report Type: 
  Country: None (occurrence: None)
  Receive Date: 20081212
  Receipt Date: 20081006
  Transmission Date: 20090506
  Serious: No
  Sender: FDA-Public Use
  Company Number: US-ABBOTT-08P-163-0479954-00

PATIENT
  Sex: Female
  Weight: 64.468 kg

DRUGS (6)
  1. HUMIRA [Suspect]
     Indication: ANKYLOSING SPONDYLITIS
     Route: 058
     Dates: start: 20080929, end: 20080929
  2. SUMATRIPTAN [Suspect]
     Indication: MIGRAINE
     Route: 048
  3. ATENOLOL [Concomitant]
     Indication: DRUG USE FOR UNKNOWN INDICATION
     Route: 048
  4. VALPROATE SODIUM [Concomitant]
     Indication: MIGRAINE
     Route: 048
  5. INDOMETHACIN [Concomitant]
     Indication: ANKYLOSING SPONDYLITIS
     Route: 048
  6. ACETYLSALICYLIC ACID SRT [Concomitant]
     Indication: ARRHYTHMIA
     Route: 048

REACTIONS (8)
  - CHEST DISCOMFORT [None]
  - DIZZINESS [None]
  - HYPOAESTHESIA FACIAL [None]
  - HYPOAESTHESIA ORAL [None]
  - PARAESTHESIA [None]
  - PARAESTHESIA ORAL [None]
  - SINUS HEADACHE [None]
  - TREMOR [None]
